FAERS Safety Report 5893326-6 (Version None)
Quarter: 2008Q3

REPORT INFORMATION
  Report Type: 
  Country: None (occurrence: None)
  Receive Date: 20080923
  Receipt Date: 20080918
  Transmission Date: 20090109
  Serious: Yes (Hospitalization)
  Sender: FDA-Public Use
  Company Number: D0058427A

PATIENT
  Age: 35 Year
  Sex: Male

DRUGS (6)
  1. TELZIR [Suspect]
     Route: 048
  2. NORVIR [Suspect]
     Route: 048
  3. TRUVADA [Suspect]
     Route: 048
  4. NORVIR [Suspect]
     Route: 048
  5. TRUVADA [Suspect]
     Route: 048
  6. ALCOHOL [Suspect]
     Route: 048

REACTIONS (2)
  - OVERDOSE [None]
  - VOMITING [None]
